FAERS Safety Report 7820111-8 (Version None)
Quarter: 2011Q4

REPORT INFORMATION
  Report Type: 
  Country: None (occurrence: None)
  Receive Date: 20111018
  Receipt Date: 20111013
  Transmission Date: 20120403
  Serious: Yes (Hospitalization)
  Sender: FDA-Public Use
  Company Number: IT-SANOFI-AVENTIS-2011SA064079

PATIENT
  Age: 74 Year
  Sex: Male

DRUGS (6)
  1. LASIX [Suspect]
     Route: 048
     Dates: start: 20070101, end: 20110527
  2. COUMADIN [Concomitant]
     Route: 048
  3. RAMIPRIL [Suspect]
     Route: 048
     Dates: start: 20070101, end: 20110527
  4. DRONEDARONE HCL [Concomitant]
     Indication: ATRIAL FIBRILLATION
     Route: 048
  5. ALDACTONE [Suspect]
     Route: 048
     Dates: start: 20070101, end: 20110527
  6. CARVEDILOL [Concomitant]
     Route: 048

REACTIONS (1)
  - RENAL FAILURE ACUTE [None]
